FAERS Safety Report 22654775 (Version 1)
Quarter: 2023Q2

REPORT INFORMATION
  Report Type: Spontaneous
  Country: US (occurrence: None)
  Receive Date: 20230628
  Receipt Date: 20230628
  Transmission Date: 20230721
  Serious: Yes (Hospitalization)
  Sender: FDA-Public Use
  Company Number: None

PATIENT
  Sex: Female

DRUGS (1)
  1. KISQALI [Suspect]
     Active Substance: RIBOCICLIB
     Indication: Breast cancer female
     Dosage: 600 MG ONCE A DAY ORAL
     Route: 048
     Dates: start: 202305, end: 20230622

REACTIONS (3)
  - White blood cell count decreased [None]
  - Pyrexia [None]
  - Therapy interrupted [None]
